FAERS Safety Report 19145550 (Version 1)
Quarter: 2021Q2

REPORT INFORMATION
  Report Type: Spontaneous
  Country: NL (occurrence: NL)
  Receive Date: 20210416
  Receipt Date: 20210416
  Transmission Date: 20210717
  Serious: Yes (Hospitalization)
  Sender: FDA-Public Use
  Company Number: NL-TEVA-2021-NL-1901315

PATIENT
  Sex: Female
  Weight: 67 kg

DRUGS (12)
  1. BACLOFEN TABLET 10MG / BRAND NAME NOT SPECIFIED [Suspect]
     Active Substance: BACLOFEN
     Indication: MUSCLE SPASMS
     Dosage: USE 4D 10MG INSTEAD OF PRESCRIBED 1D 10MG, UNIT DOSE 10MG,THERAPY END DATE ASKU
     Dates: start: 202010
  2. PANTOPRAZOL INJECTIEPOEDER 40MG / BRAND NAME NOT SPECIFIED [Concomitant]
     Dosage: THERAPY START DATE ASKU, THERAPY END DATE ASKU, 40 MG (MILLIGRAM)
  3. APIXABAN TABLET 2,5MG / BRAND NAME NOT SPECIFIED [Concomitant]
     Dosage: THERAPY START DATE ASKU, THERAPY END DATE ASKU, 2,5 MG (MILLIGRAM)
  4. AMIODARON TABLET 200MG / BRAND NAME NOT SPECIFIED [Concomitant]
     Dosage: THERAPY START DATE ASKU, THERAPY END DATE ASKU, 200 MG (MILLIGRAM)
  5. ALENDRONINEZUUR/COLECALCIFEROL TABLET 70MG/5600IE / BRAND NAME NOT SPE [Concomitant]
     Dosage: THERAPY START DATE ASKU, THERAPY END DATE ASKU, 70 MG (MILLIGRAM) / 5600 UNITS
  6. PERINDOPRIL TABLET 2MG (ERBUMINE) / BRAND NAME NOT SPECIFIED [Concomitant]
     Dosage: THERAPY START DATE ASKU, THERAPY END DATE ASKU, 2 MG (MILLIGRAM)
  7. FERROFUMARAAT TABLET 200MG / BRAND NAME NOT SPECIFIED [Concomitant]
     Active Substance: FERROUS FUMARATE
     Dosage: THERAPY START DATE ASKU, THERAPY END DATE ASKU, 200 MG (MILLIGRAM)
  8. PARACETAMOL TABLET  500MG / BRAND NAME NOT SPECIFIED [Concomitant]
     Dosage: THERAPY START DATE ASKU, THERAPY END DATE ASKU, 500 MG (MILLIGRAM)
  9. PRAMIPEXOL TABLET 0,125MG (0,088MG BASE) / BRAND NAME NOT SPECIFIED [Concomitant]
     Dosage: THERAPY START DATE ASKU, THERAPY END DATE ASKU, 0,125 MG (MILLIGRAM)
  10. SPIRONOLACTON TABLET 25MG / BRAND NAME NOT SPECIFIED [Concomitant]
     Dosage: THERAPY START DATE ASKU, THERAPY END DATE ASKU\, 25 MG (MILLIGRAM)
  11. BUMETANIDE TABLET 2MG / BRAND NAME NOT SPECIFIED [Concomitant]
     Dosage: THERAPY START DATE ASKU, THERAPY END DATE ASKU, 2 MG (MILLIGRAM)
  12. BISOPROLOL TABLET   5MG / BRAND NAME NOT SPECIFIED [Concomitant]
     Dosage: THERAPY START DATE ASKU, THERAPY END DATE ASKU, 5 MG (MILLIGRAM)

REACTIONS (4)
  - Medication error [Unknown]
  - Akathisia [Recovered/Resolved]
  - Hallucination [Recovered/Resolved]
  - Myoclonus [Recovered/Resolved]
